FAERS Safety Report 15403057 (Version 1)
Quarter: 2018Q3

REPORT INFORMATION
  Report Type: Spontaneous
  Country: US (occurrence: US)
  Receive Date: 20180918
  Receipt Date: 20180918
  Transmission Date: 20181010
  Serious: Yes (Hospitalization)
  Sender: FDA-Public Use
  Company Number: None

PATIENT
  Age: 67 Year
  Sex: Female
  Weight: 93.15 kg

DRUGS (3)
  1. HYDROC 12.5 MG TB HLOROTHIAZIDE HYDROCHLOROTHIAZIDE [Suspect]
     Active Substance: HYDROCHLOROTHIAZIDE
     Indication: FLUID RETENTION
     Dosage: ?          QUANTITY:1 DF DOSAGE FORM;?
     Route: 048
     Dates: start: 20180315, end: 20180411
  2. AMPLODIPINE [Concomitant]
  3. HYDROC 12.5 MG TB HLOROTHIAZIDE HYDROCHLOROTHIAZIDE [Suspect]
     Active Substance: HYDROCHLOROTHIAZIDE
     Indication: HYPERTENSION
     Dosage: ?          QUANTITY:1 DF DOSAGE FORM;?
     Route: 048
     Dates: start: 20180315, end: 20180411

REACTIONS (2)
  - Abdominal discomfort [None]
  - Dizziness [None]

NARRATIVE: CASE EVENT DATE: 20180801
